FAERS Safety Report 9814380 (Version 2)
Quarter: 2014Q1

REPORT INFORMATION
  Report Type: Spontaneous
  Country: US (occurrence: US)
  Receive Date: 20140113
  Receipt Date: 20140221
  Transmission Date: 20141002
  Serious: Yes (Death)
  Sender: FDA-Public Use
  Company Number: US-INCYTE CORPORATION-2014IN000058

PATIENT
  Age: 82 Year
  Sex: Male
  Weight: 68.03 kg

DRUGS (13)
  1. JAKAFI [Suspect]
     Indication: MYELOFIBROSIS
     Dosage: 10 MG, BID
     Route: 048
     Dates: start: 20131127
  2. ASA [Concomitant]
     Dosage: 81 MG, QD
     Route: 048
     Dates: start: 20090610
  3. ATORVASTATIN CALCIUM [Concomitant]
     Dosage: 10 MG, QD
     Route: 048
     Dates: start: 20130801
  4. BROVANA [Concomitant]
     Dosage: 15 MCG/2 ML
     Route: 055
     Dates: start: 20131203
  5. BUDESONIDE [Concomitant]
     Dosage: 0.5 MG/ 2 ML QD
     Route: 055
     Dates: start: 20120131
  6. CLINDAMYCIN PHOSPHATE [Concomitant]
     Dosage: 1 %, BID
     Route: 061
     Dates: start: 20131203
  7. DIOVAN [Concomitant]
     Dosage: 80 MG, QD
     Route: 048
     Dates: start: 20090610
  8. HYDROCODONE BITARTRATE AND ACETAMINOPHEN [Concomitant]
     Indication: PAIN
     Dosage: 5-325 MG , TID
     Route: 048
     Dates: start: 20131203
  9. LEVOTHYROXINE [Concomitant]
     Dosage: 50 MCG, QD
     Dates: start: 20120613
  10. MEGACE [Concomitant]
     Dosage: 625 MG/ 5 ML QD
     Dates: start: 20131227
  11. ONDANSETRON [Concomitant]
     Indication: NAUSEA
     Dosage: 4 MG Q 6 HOURS PRN
     Dates: start: 20131224
  12. PREDNISONE [Concomitant]
     Dosage: 5 MG, QD
     Route: 048
     Dates: start: 20120613
  13. XOPENEX [Concomitant]
     Dosage: 1.25 MG/3 ML, Q 4-6 HOURS
     Route: 055

REACTIONS (7)
  - Bone marrow failure [Fatal]
  - Splenomegaly [Unknown]
  - Fatigue [Unknown]
  - Decreased appetite [Unknown]
  - Mobility decreased [Unknown]
  - Weight decreased [Unknown]
  - Leukocytosis [Unknown]
